FAERS Safety Report 5268450-1 (Version None)
Quarter: 2007Q1

REPORT INFORMATION
  Report Type: 
  Country: None (occurrence: None)
  Receive Date: 20070315
  Receipt Date: 20070315
  Transmission Date: 20070707
  Serious: No
  Sender: FDA-Public Use
  Company Number: None

PATIENT
  Age: 33 Year
  Sex: Female
  Weight: 68.0396 kg

DRUGS (1)
  1. YASMIN [Suspect]
     Indication: CONTRACEPTION
     Dosage: 1 TABLET DAILY PO
     Route: 048
     Dates: start: 20070308, end: 20070312

REACTIONS (14)
  - ABDOMINAL PAIN UPPER [None]
  - ANGINA PECTORIS [None]
  - EYE PAIN [None]
  - FEELING ABNORMAL [None]
  - HYPOAESTHESIA [None]
  - INFLUENZA [None]
  - MIGRAINE [None]
  - NAUSEA [None]
  - PAIN [None]
  - PALPITATIONS [None]
  - PYREXIA [None]
  - SWELLING FACE [None]
  - VOMITING [None]
  - WHEEZING [None]
